FAERS Safety Report 9935731 (Version 1)
Quarter: 2014Q1

REPORT INFORMATION
  Report Type: Spontaneous
  Country: US (occurrence: US)
  Receive Date: 20140228
  Receipt Date: 20140228
  Transmission Date: 20141002
  Serious: No
  Sender: FDA-Public Use
  Company Number: US-AMGEN-USASP2013083919

PATIENT
  Age: 55 Year
  Sex: Female

DRUGS (13)
  1. ENBREL [Suspect]
     Indication: RHEUMATOID ARTHRITIS
     Dosage: 50 MG, QWK
     Route: 058
     Dates: start: 20130725
  2. COREG [Concomitant]
     Dosage: UNK
  3. METHOTREXATE [Concomitant]
     Dosage: UNK
  4. LYRICA [Concomitant]
     Dosage: UNK
  5. SYNTHROID [Concomitant]
     Dosage: UNK
  6. FOLIC ACID [Concomitant]
     Dosage: UNK
  7. FAMOTIDINE [Concomitant]
     Dosage: UNK
  8. ESTRACE [Concomitant]
     Dosage: UNK
  9. SAVELLA [Concomitant]
     Dosage: UNK
  10. CELEXA                             /00582602/ [Concomitant]
     Dosage: UNK
  11. POTASSIUM [Concomitant]
     Dosage: UNK
  12. OXYCONTIN [Concomitant]
     Dosage: UNK
  13. MAGNESIUM [Concomitant]
     Dosage: UNK

REACTIONS (2)
  - Injection site pruritus [Not Recovered/Not Resolved]
  - Injection site erythema [Not Recovered/Not Resolved]
